FAERS Safety Report 4602172-2 (Version None)
Quarter: 2005Q2

REPORT INFORMATION
  Report Type: 
  Country: None (occurrence: None)
  Receive Date: 20050215
  Receipt Date: 20040908
  Transmission Date: 20051028
  Serious: No
  Sender: FDA-Public Use
  Company Number: MC200400511

PATIENT
  Sex: Male
  Weight: 122 kg

DRUGS (3)
  1. ANGIOMAX [Suspect]
     Dosage: 18 ML, BOLUS, IV BOLUS
     Route: 040
  2. ANGIOMAX [Suspect]
     Dosage: 8 ML, HR (5 MG/ML), INTRAVENOUS
     Route: 042
  3. INTEGRILIN [Concomitant]

REACTIONS (2)
  - CORONARY ARTERY THROMBOSIS [None]
  - MYOCARDIAL INFARCTION [None]
